FAERS Safety Report 23751835 (Version 2)
Quarter: 2024Q2

REPORT INFORMATION
  Report Type: Spontaneous
  Country: IE (occurrence: IE)
  Receive Date: 20240417
  Receipt Date: 20240425
  Transmission Date: 20240716
  Serious: Yes (Hospitalization, Other)
  Sender: FDA-Public Use
  Company Number: IE-MEDAC-2024-AER-00641

PATIENT
  Age: 67 Year
  Sex: Female

DRUGS (1)
  1. METHOTREXATE SODIUM [Suspect]
     Active Substance: METHOTREXATE SODIUM
     Indication: Rheumatoid arthritis
     Dosage: UNK

REACTIONS (4)
  - Herpes zoster disseminated [Recovered/Resolved]
  - Disseminated varicella zoster virus infection [Recovered/Resolved]
  - Facial paralysis [Recovering/Resolving]
  - Tooth avulsion [Unknown]
